FAERS Safety Report 17849523 (Version 1)
Quarter: 2020Q2

REPORT INFORMATION
  Report Type: Spontaneous
  Country: US (occurrence: US)
  Receive Date: 20200602
  Receipt Date: 20200602
  Transmission Date: 20200714
  Serious: No
  Sender: FDA-Public Use
  Company Number: US-ADVANZ PHARMA-202004004125

PATIENT

DRUGS (1)
  1. HYDROXYCHLOROQUINE [Suspect]
     Active Substance: HYDROXYCHLOROQUINE
     Dosage: DECREASED DOSE

REACTIONS (4)
  - Peripheral swelling [Unknown]
  - Condition aggravated [Unknown]
  - Unevaluable event [Unknown]
  - Product availability issue [Unknown]
